FAERS Safety Report 4430809-X (Version None)
Quarter: 2004Q3

REPORT INFORMATION
  Report Type: 
  Country: None (occurrence: None)
  Receive Date: 20040823
  Receipt Date: 20040813
  Transmission Date: 20050211
  Serious: Yes (Hospitalization)
  Sender: FDA-Public Use
  Company Number: US-BRISTOL-MYERS SQUIBB COMPANY-12669875

PATIENT
  Age: 67 Year
  Sex: Female

DRUGS (3)
  1. TAXOL [Suspect]
  2. PARAPLATIN [Suspect]
  3. RADIATION THERAPY [Suspect]

REACTIONS (1)
  - CONVULSION [None]
